FAERS Safety Report 20711255 (Version 1)
Quarter: 2022Q2

REPORT INFORMATION
  Report Type: Spontaneous
  Country: US (occurrence: None)
  Receive Date: 20220414
  Receipt Date: 20220414
  Transmission Date: 20220720
  Serious: Yes (Death)
  Sender: FDA-Public Use
  Company Number: None

PATIENT
  Sex: Male

DRUGS (2)
  1. TEMOZOLOMIDE [Suspect]
     Active Substance: TEMOZOLOMIDE
     Indication: Brain neoplasm
     Dosage: TAKE 1 CAPSULE BY MOUTH DAILY WITH 1 OTHER TEMOZOLOMIDE PRESCRIPTION FOR 160 MG TOTAL TAKE ON AN EMP
     Route: 048
     Dates: start: 20220311
  2. TEMOZOLOMIDE [Suspect]
     Active Substance: TEMOZOLOMIDE
     Dosage: 20MG ?TAKE 1 CAPSULE BY MOUTH DAILY WITH 1 OTHER TEMOZOLOMIDE PRESCRIPTION FOR 160 MG TOTAL TAKE ON
     Route: 048

REACTIONS (1)
  - Death [None]
